FAERS Safety Report 7328222-0 (Version None)
Quarter: 2011Q1

REPORT INFORMATION
  Report Type: 
  Country: None (occurrence: None)
  Receive Date: 20110218
  Receipt Date: 20110202
  Transmission Date: 20110831
  Serious: Yes (Hospitalization)
  Sender: FDA-Public Use
  Company Number: 2011MA001065

PATIENT
  Age: 43 Year
  Sex: Female

DRUGS (3)
  1. PROPYLTHIOURACIL [Suspect]
     Dosage: 100 MG, QD, PO
     Route: 048
     Dates: start: 20080201
  2. PREV MEDS [Concomitant]
  3. CON MEDS [Concomitant]

REACTIONS (11)
  - ASPARTATE AMINOTRANSFERASE INCREASED [None]
  - LIVER FUNCTION TEST ABNORMAL [None]
  - SCRATCH [None]
  - BLOOD BILIRUBIN INCREASED [None]
  - HYPOTHYROIDISM [None]
  - EPIGASTRIC DISCOMFORT [None]
  - PRURITUS [None]
  - ALANINE AMINOTRANSFERASE INCREASED [None]
  - SKIN LESION [None]
  - YELLOW SKIN [None]
  - NORMOCHROMIC NORMOCYTIC ANAEMIA [None]
